FAERS Safety Report 16163166 (Version 2)
Quarter: 2019Q2

REPORT INFORMATION
  Report Type: Spontaneous
  Country: JP (occurrence: JP)
  Receive Date: 20190405
  Receipt Date: 20190510
  Transmission Date: 20190711
  Serious: Yes (Death, Life-Threatening, Other)
  Sender: FDA-Public Use
  Company Number: JP-ROCHE-2298062

PATIENT
  Age: 88 Year
  Sex: Female

DRUGS (5)
  1. RITUXAN [Suspect]
     Active Substance: RITUXIMAB
     Indication: ANAPLASTIC LARGE-CELL LYMPHOMA
     Route: 041
     Dates: start: 20190311, end: 20190311
  2. ALOXI [Concomitant]
     Active Substance: PALONOSETRON HYDROCHLORIDE
  3. PREDNISOLONE. [Suspect]
     Active Substance: PREDNISOLONE
     Indication: ANAPLASTIC LARGE-CELL LYMPHOMA
     Route: 042
  4. DOXORUBICIN HYDROCHLORIDE. [Suspect]
     Active Substance: DOXORUBICIN HYDROCHLORIDE
     Indication: ANAPLASTIC LARGE-CELL LYMPHOMA
     Route: 042
  5. VINCRISTINE SULFATE. [Suspect]
     Active Substance: VINCRISTINE SULFATE
     Indication: ANAPLASTIC LARGE-CELL LYMPHOMA
     Route: 042

REACTIONS (3)
  - Febrile neutropenia [Recovered/Resolved]
  - Bone marrow failure [Unknown]
  - Disseminated intravascular coagulation [Fatal]

NARRATIVE: CASE EVENT DATE: 20190320
